FAERS Safety Report 4629174-4 (Version None)
Quarter: 2005Q2

REPORT INFORMATION
  Report Type: 
  Country: None (occurrence: None)
  Receive Date: 20050407
  Receipt Date: 20050330
  Transmission Date: 20051028
  Serious: Yes (Death, Other)
  Sender: FDA-Public Use
  Company Number: US-BRISTOL-MYERS SQUIBB COMPANY-12917787

PATIENT
  Age: 43 Year
  Sex: Male

DRUGS (1)
  1. SERZONE [Suspect]
     Dates: start: 20011101, end: 20030801

REACTIONS (7)
  - AMPUTATION [None]
  - CEREBROVASCULAR ACCIDENT [None]
  - DEATH [None]
  - HEPATOCELLULAR DAMAGE [None]
  - MYOCARDIAL INFARCTION [None]
  - RENAL DISORDER [None]
  - THROMBOSIS [None]
